FAERS Safety Report 5453942-2 (Version None)
Quarter: 2007Q3

REPORT INFORMATION
  Report Type: 
  Country: None (occurrence: None)
  Receive Date: 20070917
  Receipt Date: 20070423
  Transmission Date: 20080115
  Serious: Yes (Hospitalization)
  Sender: FDA-Public Use
  Company Number: US-ASTRAZENECA-2006UW02150

PATIENT
  Age: 16257 Day
  Sex: Male
  Weight: 130 kg

DRUGS (54)
  1. SEROQUEL [Suspect]
     Indication: SCHIZOPHRENIA
     Route: 048
     Dates: start: 20010201
  2. SEROQUEL [Suspect]
     Route: 048
     Dates: start: 20030108
  3. SEROQUEL [Suspect]
     Route: 048
     Dates: start: 20030205, end: 20030401
  4. RISPERDAL [Suspect]
     Indication: SCHIZOPHRENIA
     Route: 048
     Dates: start: 20000110
  5. RISPERDAL [Suspect]
     Route: 048
     Dates: start: 20000410
  6. RISPERDAL [Suspect]
     Route: 048
     Dates: start: 20010104, end: 20030401
  7. WELLBUTRIN SR [Concomitant]
     Route: 048
     Dates: start: 19991004
  8. CLONAZEPAM [Concomitant]
     Dosage: 0.5 MG - 3 MG
     Route: 048
     Dates: start: 19991115, end: 20060508
  9. NEURONTIN [Concomitant]
     Route: 048
     Dates: start: 19991004
  10. TRIAMTERENE [Concomitant]
     Dosage: 37.5/25
     Dates: start: 20000214
  11. TRIAMTERENE [Concomitant]
     Dosage: 75/50
     Dates: start: 20010720
  12. CELEBREX [Concomitant]
     Dates: start: 20000314
  13. ZOLOFT [Concomitant]
     Route: 048
     Dates: start: 19991004, end: 20060210
  14. ALBUTEROL [Concomitant]
     Route: 055
     Dates: start: 20000214
  15. BETAMETHASONE DIPROPIONATE [Concomitant]
     Route: 061
     Dates: start: 20000612
  16. IBUPROFEN [Concomitant]
     Route: 048
     Dates: start: 20000427
  17. ACETAMINOPHEN [Concomitant]
     Dosage: 500 MG-650 MG
     Route: 048
     Dates: start: 19990506
  18. SKELAXIN [Concomitant]
     Route: 048
  19. ROXICET [Concomitant]
     Dosage: 5-325 MG
     Route: 048
     Dates: start: 20020925
  20. GEODON [Concomitant]
     Route: 048
     Dates: start: 20030421
  21. GLYBURIDE [Concomitant]
     Route: 048
     Dates: start: 20030419
  22. GLYBURIDE [Concomitant]
     Route: 048
  23. GLIPIZIDE [Concomitant]
     Route: 048
     Dates: start: 20031222
  24. GLIPIZIDE [Concomitant]
     Route: 048
     Dates: start: 20030422
  25. TRAMADOL HCL [Concomitant]
     Route: 048
     Dates: start: 20031219
  26. NYQUIL [Concomitant]
     Route: 048
     Dates: start: 20031111
  27. TRIAMCINOLONE [Concomitant]
     Route: 061
     Dates: start: 20030908
  28. TRAZODONE HCL [Concomitant]
     Route: 048
     Dates: start: 20040209
  29. RANITIDINE [Concomitant]
     Indication: GASTROOESOPHAGEAL REFLUX DISEASE
     Route: 048
     Dates: start: 20040811
  30. PRILOSEC OTC [Concomitant]
     Route: 048
     Dates: start: 20041019
  31. MIRTAZAPINE [Concomitant]
     Route: 048
     Dates: start: 20050104
  32. MIRTAZAPINE [Concomitant]
     Route: 048
     Dates: start: 20060804
  33. LISINOPRIL [Concomitant]
     Route: 048
     Dates: start: 20050203
  34. LISINOPRIL [Concomitant]
     Route: 048
     Dates: start: 20050506
  35. AMBIEN [Concomitant]
     Route: 048
     Dates: start: 20050104
  36. CYCLOBENZAPRINE HCL [Concomitant]
     Route: 048
     Dates: start: 20050506
  37. TRICOR [Concomitant]
     Route: 048
     Dates: start: 20050809
  38. METFORMIN HCL [Concomitant]
     Route: 048
     Dates: start: 20060210
  39. METFORMIN HCL [Concomitant]
     Route: 048
     Dates: start: 20060515
  40. ALPRAZOLAM [Concomitant]
     Route: 048
     Dates: start: 20060509
  41. GEMFIBROZIL [Concomitant]
     Route: 048
     Dates: start: 20060614
  42. DICLOXACILLIN [Concomitant]
     Route: 048
     Dates: start: 20060605
  43. CODEINE SUL TAB [Concomitant]
     Dosage: 300-30 MG
     Route: 048
     Dates: start: 20070118
  44. DIPROLENE [Concomitant]
     Route: 061
     Dates: start: 20020107
  45. CELEXA [Concomitant]
     Dosage: 20 MG - 40 MG
     Route: 048
     Dates: start: 20060210
  46. INSULINE [Concomitant]
     Route: 042
     Dates: start: 20030418
  47. INSULIN [Concomitant]
     Dosage: SLIDING SCALE
     Route: 058
     Dates: start: 20030419
  48. GLUCOPHAGE [Concomitant]
     Route: 048
     Dates: end: 20060808
  49. GLUCOPHAGE [Concomitant]
     Route: 048
     Dates: start: 20060808
  50. LOPID [Concomitant]
     Indication: HYPERLIPIDAEMIA
  51. LIPITOR [Concomitant]
     Indication: HYPERLIPIDAEMIA
     Route: 048
     Dates: start: 20060508
  52. VIOXX [Concomitant]
     Route: 048
     Dates: start: 20030419
  53. LOXITANE [Concomitant]
     Indication: AGITATION
     Route: 048
     Dates: start: 19990507
  54. ATIVAN [Concomitant]
     Indication: AGITATION
     Route: 048
     Dates: start: 19990307

REACTIONS (1)
  - DIABETES MELLITUS [None]
